FAERS Safety Report 7002833-4 (Version None)
Quarter: 2010Q3

REPORT INFORMATION
  Report Type: 
  Country: None (occurrence: None)
  Receive Date: 20100920
  Receipt Date: 20070926
  Transmission Date: 20110219
  Serious: Yes (Hospitalization)
  Sender: FDA-Public Use
  Company Number: US-ASTRAZENECA-2006UW22877

PATIENT
  Age: 45 Year
  Sex: Female
  Weight: 139.3 kg

DRUGS (12)
  1. SEROQUEL [Suspect]
     Indication: BIPOLAR DISORDER
     Dosage: 25-200 MG
     Route: 048
     Dates: start: 20010125, end: 20071017
  2. SEROQUEL [Suspect]
     Indication: DEPRESSION
     Dosage: 25-200 MG
     Route: 048
     Dates: start: 20010125, end: 20071017
  3. SEROQUEL [Suspect]
     Route: 048
     Dates: start: 20030101
  4. SEROQUEL [Suspect]
     Route: 048
     Dates: start: 20030101
  5. ABILIFY [Concomitant]
     Dosage: 15-30 MG
     Dates: start: 20031117
  6. WELLBUTRIN [Concomitant]
     Indication: MOOD ALTERED
     Dosage: 150 MG DISPENSED
     Dates: start: 20031117
  7. WELLBUTRIN [Concomitant]
     Dates: start: 20060101
  8. LIPITOR [Concomitant]
     Dosage: 10 MG, 80 MG
     Dates: start: 20031215
  9. ZANTAC [Concomitant]
     Indication: DYSPEPSIA
     Dosage: 150 MG BID, 300 MG ONCE A DAY (AT BEDTIME)
     Dates: start: 20010108
  10. PROZAC [Concomitant]
     Indication: DEPRESSION
     Dates: start: 20000110
  11. AMBINE CR [Concomitant]
     Indication: INSOMNIA
     Dosage: 12.5 MG DISPENSED
     Dates: start: 20031117
  12. GLUCOPHAGE [Concomitant]
     Dates: start: 20030929

REACTIONS (10)
  - BLOOD CHOLESTEROL INCREASED [None]
  - BLOOD GLUCOSE INCREASED [None]
  - DIABETES MELLITUS [None]
  - DIABETES MELLITUS INADEQUATE CONTROL [None]
  - GASTROOESOPHAGEAL REFLUX DISEASE [None]
  - GLUCOSE TOLERANCE IMPAIRED [None]
  - OBESITY [None]
  - SLEEP APNOEA SYNDROME [None]
  - SLEEP DISORDER [None]
  - TYPE 2 DIABETES MELLITUS [None]
